FAERS Safety Report 4358069-9 (Version None)
Quarter: 2004Q2

REPORT INFORMATION
  Report Type: 
  Country: None (occurrence: None)
  Receive Date: 20040510
  Receipt Date: 20040427
  Transmission Date: 20050107
  Serious: Yes (Hospitalization)
  Sender: FDA-Public Use
  Company Number: US-JNJFOC-20040405962

PATIENT
  Age: 68 Year
  Sex: Female
  Weight: 62.5964 kg

DRUGS (8)
  1. INFLIXIMAB (INFLIXIMAB, RECOMBINANT) LYOPHILIZED POWDER [Suspect]
     Indication: RHEUMATOID ARTHRITIS
     Dosage: INTRAVENOUS
     Route: 042
     Dates: start: 20021130
  2. DILANTIN [Concomitant]
  3. METHOTREXATE [Concomitant]
  4. DIOVAN [Concomitant]
  5. TYLENOL [Concomitant]
  6. CALCIUM + D (CALCIUM) [Concomitant]
  7. MOBIC [Concomitant]
  8. ZANTAC [Concomitant]

REACTIONS (4)
  - ASTHENIA [None]
  - HYPOVOLAEMIA [None]
  - INFLUENZA LIKE ILLNESS [None]
  - RESPIRATORY DISORDER [None]
